FAERS Safety Report 7327656-8 (Version None)
Quarter: 2011Q1

REPORT INFORMATION
  Report Type: 
  Country: None (occurrence: None)
  Receive Date: 20110303
  Receipt Date: 20110216
  Transmission Date: 20110831
  Serious: Yes (Hospitalization, Other)
  Sender: FDA-Public Use
  Company Number: US-BAYER-201024541NA

PATIENT
  Sex: Female
  Weight: 58.957 kg

DRUGS (22)
  1. PRAVASTATIN [Concomitant]
     Indication: HYPERLIPIDAEMIA
     Dosage: 20 MG, UNK
     Dates: start: 20090403, end: 20090626
  2. NEURONTIN [Concomitant]
     Dosage: 400 MG, UNK
  3. CALCIUM D [Concomitant]
  4. VITAMIN B COMPLEX CAP [Concomitant]
  5. TOPROL-XL [Concomitant]
     Dosage: 50 MG, UNK
  6. PLAVIX [Concomitant]
     Dosage: 75 MG, UNK
  7. UNCODEABLE ^UNCLASSIFIABLE^ [Concomitant]
  8. AMLODIPINE [Concomitant]
     Dosage: 5 MG, UNK
  9. ASA [Concomitant]
     Dosage: 81 MG, UNK
  10. NIASPAN [Concomitant]
     Indication: HYPERLIPIDAEMIA
     Dosage: UNK
     Dates: start: 20091117
  11. ALLEGRA [Concomitant]
  12. PRILOSEC [Concomitant]
     Dosage: 20 MG, UNK
  13. NASONEX [Concomitant]
  14. FLEXERIL [Concomitant]
     Dosage: 10 MG, UNK
  15. YAZ [Suspect]
     Dosage: UNK
     Dates: start: 20080901, end: 20090522
  16. YASMIN [Suspect]
     Indication: PREMENSTRUAL SYNDROME
     Route: 048
     Dates: start: 20080701, end: 20090501
  17. LORTAB [Concomitant]
     Dosage: 5 MG, UNK
  18. YAZ [Suspect]
     Indication: PREMENSTRUAL SYNDROME
     Route: 048
     Dates: start: 20080701, end: 20090501
  19. LIPITOR [Concomitant]
     Indication: HYPERLIPIDAEMIA
     Dosage: UNK
     Dates: start: 20090626
  20. ASA [Concomitant]
     Dosage: 325 MG, UNK
  21. NEURONTIN [Concomitant]
     Dosage: 800 MG, UNK
  22. ALBUTEROL [Concomitant]

REACTIONS (4)
  - HEMIPARESIS [None]
  - BACK PAIN [None]
  - CEREBROVASCULAR ACCIDENT [None]
  - CHEST PAIN [None]
